FAERS Safety Report 8111851-4 (Version None)
Quarter: 2012Q1

REPORT INFORMATION
  Report Type: 
  Country: None (occurrence: None)
  Receive Date: 20120203
  Receipt Date: 20120131
  Transmission Date: 20120608
  Serious: Yes (Other)
  Sender: FDA-Public Use
  Company Number: AU-PFIZER INC-2012027993

PATIENT
  Sex: Female

DRUGS (4)
  1. VITAMIN D [Concomitant]
  2. VITAMIN B-12 [Concomitant]
  3. PREMARIN [Suspect]
  4. CALCIUM [Concomitant]

REACTIONS (1)
  - HYPONATRAEMIA [None]
